FAERS Safety Report 11804945 (Version 3)
Quarter: 2016Q3

REPORT INFORMATION
  Report Type: Spontaneous
  Country: US (occurrence: US)
  Receive Date: 20151205
  Receipt Date: 20160801
  Transmission Date: 20161109
  Serious: Yes (Death, Other)
  Sender: FDA-Public Use
  Company Number: US-BRISTOL-MYERS SQUIBB COMPANY-BMS-2015-084299

PATIENT
  Age: 62 Year
  Sex: Male

DRUGS (2)
  1. ERTAPENEM [Concomitant]
     Active Substance: ERTAPENEM
     Indication: PRODUCT USED FOR UNKNOWN INDICATION
     Route: 065
  2. OPDIVO [Suspect]
     Active Substance: NIVOLUMAB
     Indication: LIP AND/OR ORAL CAVITY CANCER
     Dosage: 3 MG/KG, UNK
     Route: 042
     Dates: start: 20150607

REACTIONS (2)
  - Malignant neoplasm progression [Fatal]
  - Off label use [Unknown]
